FAERS Safety Report 13745267 (Version 3)
Quarter: 2017Q3

REPORT INFORMATION
  Report Type: Spontaneous
  Country: DE (occurrence: DE)
  Receive Date: 20170712
  Receipt Date: 20170724
  Transmission Date: 20171127
  Serious: Yes (Other)
  Sender: FDA-Public Use
  Company Number: DE-BRISTOL-MYERS SQUIBB COMPANY-BMS-2017-059421

PATIENT
  Age: 69 Year
  Sex: Female
  Weight: 105 kg

DRUGS (4)
  1. ELIQUIS [Suspect]
     Active Substance: APIXABAN
     Indication: PRODUCT USED FOR UNKNOWN INDICATION
     Dosage: 2.5 MG, BID
     Route: 048
     Dates: start: 20170406
  2. VERAPAMIL [Concomitant]
     Active Substance: VERAPAMIL HYDROCHLORIDE
     Indication: PRODUCT USED FOR UNKNOWN INDICATION
     Dosage: 300 MG, DAILY
     Route: 065
  3. ELIQUIS [Suspect]
     Active Substance: APIXABAN
     Indication: CEREBROVASCULAR ACCIDENT PROPHYLAXIS
     Dosage: 5 MG, BID
     Route: 065
     Dates: start: 20161213, end: 20170405
  4. EUTHYROX [Concomitant]
     Active Substance: LEVOTHYROXINE SODIUM
     Indication: PRODUCT USED FOR UNKNOWN INDICATION
     Dosage: 50 ?G, DAILY
     Route: 065

REACTIONS (20)
  - Migraine [Unknown]
  - Cardiac ablation [Unknown]
  - Muscular weakness [Unknown]
  - Muscle spasms [Unknown]
  - Nasal dryness [Unknown]
  - Ventricular extrasystoles [Unknown]
  - Dry eye [Unknown]
  - Mucosal dryness [Unknown]
  - Dehydration [Unknown]
  - Vein rupture [Unknown]
  - Disturbance in attention [Unknown]
  - Haematoma [Unknown]
  - Sleep disorder [Unknown]
  - Arrhythmia [Unknown]
  - Dry skin [Unknown]
  - Dysgeusia [Unknown]
  - Decreased appetite [Unknown]
  - Tremor [Unknown]
  - Petechiae [Unknown]
  - Incorrect dose administered [Unknown]

NARRATIVE: CASE EVENT DATE: 201612
